FAERS Safety Report 12379918 (Version 1)
Quarter: 2016Q2

REPORT INFORMATION
  Report Type: Spontaneous
  Country: TW (occurrence: TW)
  Receive Date: 20160518
  Receipt Date: 20160518
  Transmission Date: 20160815
  Serious: Yes (Other)
  Sender: FDA-Public Use
  Company Number: TW-PAR PHARMACEUTICAL COMPANIES-2016SCPR015457

PATIENT

DRUGS (9)
  1. RISPERIDONE. [Interacting]
     Active Substance: RISPERIDONE
     Indication: INSOMNIA
  2. BUPROPION HYDROCHLORIDE SR [Interacting]
     Active Substance: BUPROPION HYDROCHLORIDE
     Indication: BIPOLAR II DISORDER
     Dosage: 300 MG, / DAY
     Route: 065
     Dates: start: 2012, end: 2012
  3. BUPROPION HYDROCHLORIDE SR [Interacting]
     Active Substance: BUPROPION HYDROCHLORIDE
     Dosage: 150 MG, / DAY
     Route: 065
     Dates: start: 2012, end: 2012
  4. LAMOTRIGINE. [Concomitant]
     Active Substance: LAMOTRIGINE
     Indication: MAJOR DEPRESSION
     Dosage: 25 MG, / DAY
     Route: 065
     Dates: start: 2012, end: 2012
  5. RISPERIDONE. [Suspect]
     Active Substance: RISPERIDONE
     Indication: HALLUCINATION, AUDITORY
     Dosage: UNK UNK, UNKNOWN (FROM DAY 11)
     Route: 065
     Dates: start: 2012
  6. QUETIAPINE. [Concomitant]
     Active Substance: QUETIAPINE
     Indication: HALLUCINATION, AUDITORY
     Dosage: 100 MG / DAY (FROM DAY 8)
     Route: 065
     Dates: start: 2012, end: 2012
  7. QUETIAPINE. [Concomitant]
     Active Substance: QUETIAPINE
     Indication: INSOMNIA
     Dosage: 200 MG / DAY (FROM DAY 10)
     Route: 065
     Dates: start: 2012, end: 2012
  8. BUPROPION HYDROCHLORIDE SR [Interacting]
     Active Substance: BUPROPION HYDROCHLORIDE
     Indication: MAJOR DEPRESSION
     Dosage: 150 MG, / DAY
     Route: 065
     Dates: start: 2012, end: 2012
  9. LAMOTRIGINE. [Concomitant]
     Active Substance: LAMOTRIGINE
     Indication: BIPOLAR II DISORDER
     Dosage: 75 MG, / DAY
     Route: 065
     Dates: start: 2012, end: 2012

REACTIONS (2)
  - Delirium [Recovered/Resolved]
  - Drug interaction [Unknown]

NARRATIVE: CASE EVENT DATE: 2012
